FAERS Safety Report 5497332-5 (Version None)
Quarter: 2007Q4

REPORT INFORMATION
  Report Type: 
  Country: None (occurrence: None)
  Receive Date: 20071025
  Receipt Date: 20070514
  Transmission Date: 20080405
  Serious: No
  Sender: FDA-Public Use
  Company Number: A0622301A

PATIENT
  Age: 73 Year
  Sex: Male

DRUGS (16)
  1. ADVAIR DISKUS 100/50 [Suspect]
     Indication: ASTHMA
     Dosage: 1PUFF TWICE PER DAY
     Route: 055
  2. ADVAIR DISKUS 100/50 [Suspect]
     Dosage: 2PUFF TWICE PER DAY
     Route: 055
  3. SPIRIVA [Concomitant]
  4. FLONASE [Concomitant]
  5. FOSAMAX [Concomitant]
  6. ALLEGRA [Concomitant]
  7. NEXIUM [Concomitant]
  8. ASPIRIN [Concomitant]
  9. MULTI-VITAMIN [Concomitant]
  10. NIACIN [Concomitant]
  11. SELENIUM [Concomitant]
  12. ASCORBIC ACID [Concomitant]
  13. CALCIUM CITRATE [Concomitant]
  14. FISH OILS [Concomitant]
  15. ATENOLOL [Concomitant]
  16. FOLTX [Concomitant]

REACTIONS (1)
  - APHONIA [None]
